FAERS Safety Report 9012585 (Version 1)
Quarter: 2013Q1

REPORT INFORMATION
  Report Type: Report from Study
  Country: GB (occurrence: GB)
  Receive Date: 20130114
  Receipt Date: 20130114
  Transmission Date: 20140127
  Serious: Yes (Other)
  Sender: FDA-Public Use
  Company Number: GB-VERTEX PHARMACEUTICALS INC.-2013-000526

PATIENT
  Age: 54 Year
  Sex: Male

DRUGS (3)
  1. VX-950 (TELAPREVIR) [Suspect]
     Indication: HEPATITIS C
     Dosage: 750 MG, TID
     Route: 048
     Dates: start: 20121027
  2. RIBAVIRIN [Concomitant]
     Indication: HEPATITIS C
     Dosage: UNK
     Route: 048
     Dates: start: 20121027
  3. PEG INTERFERON [Concomitant]
     Indication: HEPATITIS C
     Dosage: UNK
     Route: 058
     Dates: start: 20121027

REACTIONS (1)
  - Eye infection [Not Recovered/Not Resolved]
